FAERS Safety Report 16233053 (Version 4)
Quarter: 2021Q4

REPORT INFORMATION
  Report Type: Spontaneous
  Country: US (occurrence: US)
  Receive Date: 20190424
  Receipt Date: 20211103
  Transmission Date: 20220303
  Serious: No
  Sender: FDA-Public Use
  Company Number: US-PFIZER INC-2019169831

PATIENT
  Age: 60 Year
  Sex: Female
  Weight: 136 kg

DRUGS (3)
  1. GABAPENTIN [Suspect]
     Active Substance: GABAPENTIN
     Indication: Neuropathy peripheral
     Dosage: UNK, TWO TIMES A DAY
  2. GABAPENTIN [Suspect]
     Active Substance: GABAPENTIN
     Dosage: 900 MG, ONCE A DAY (300MG THREE A DAY AT ONE TIME)
  3. GABAPENTIN [Suspect]
     Active Substance: GABAPENTIN
     Dosage: 600 MG, THREE TIMES A DAY

REACTIONS (3)
  - Pain [Unknown]
  - Off label use [Unknown]
  - Drug ineffective for unapproved indication [Unknown]
